FAERS Safety Report 9874361 (Version 4)
Quarter: 2017Q1

REPORT INFORMATION
  Report Type: Other
  Country: US (occurrence: US)
  Receive Date: 20140206
  Receipt Date: 20170211
  Transmission Date: 20170429
  Serious: No
  Sender: FDA-Public Use
  Company Number: US-ACORDA-ACO_34867_2013

PATIENT
  Age: 59 Year
  Sex: Female
  Weight: 67.12 kg

DRUGS (28)
  1. AMPYRA [Suspect]
     Active Substance: DALFAMPRIDINE
     Dosage: 10 MG, QD
     Route: 065
     Dates: start: 201403, end: 201403
  2. MOTRIN [Concomitant]
     Active Substance: IBUPROFEN
     Indication: PRODUCT USED FOR UNKNOWN INDICATION
     Dosage: 800 MG, UNK
     Route: 065
     Dates: start: 1994
  3. AMPYRA [Suspect]
     Active Substance: DALFAMPRIDINE
     Indication: GAIT DISTURBANCE
     Dosage: 10 MG, Q 12 HRS
     Route: 048
     Dates: start: 20110203, end: 20130307
  4. AMPYRA [Suspect]
     Active Substance: DALFAMPRIDINE
     Dosage: 10 MG, QD
     Route: 048
     Dates: start: 20130308, end: 20130322
  5. PREDNISONE. [Suspect]
     Active Substance: PREDNISONE
     Indication: PRODUCT USED FOR UNKNOWN INDICATION
     Dosage: 60 MG, QD
     Route: 048
     Dates: start: 201412
  6. PREDNISONE. [Suspect]
     Active Substance: PREDNISONE
     Dosage: 10 MG, QD
     Route: 048
  7. KLONOPIN [Concomitant]
     Active Substance: CLONAZEPAM
     Indication: PRODUCT USED FOR UNKNOWN INDICATION
     Dosage: 0.5 MG, QD AT HS
     Route: 048
     Dates: start: 1994
  8. MACROBID [Concomitant]
     Active Substance: NITROFURANTOIN\NITROFURANTOIN MONOHYDRATE
     Indication: PRODUCT USED FOR UNKNOWN INDICATION
     Dosage: UNK
     Dates: start: 1994
  9. DETROL LA [Concomitant]
     Active Substance: TOLTERODINE TARTRATE
     Indication: PRODUCT USED FOR UNKNOWN INDICATION
     Dosage: 4 MG, UNK
     Route: 065
     Dates: start: 1994
  10. AMPYRA [Suspect]
     Active Substance: DALFAMPRIDINE
     Dosage: 10 MG, BID, QOD
     Route: 065
     Dates: start: 201402, end: 20140313
  11. EFFEXOR [Concomitant]
     Active Substance: VENLAFAXINE HYDROCHLORIDE
     Indication: MULTIPLE SCLEROSIS
     Dosage: 150 MG, QD
     Route: 048
  12. SOLU-MEDROL [Concomitant]
     Active Substance: METHYLPREDNISOLONE SODIUM SUCCINATE
     Indication: MULTIPLE SCLEROSIS
     Dosage: 1 G, MONTHLY
     Route: 042
  13. STERIODS [Suspect]
     Active Substance: UNSPECIFIED INGREDIENT
     Indication: PRODUCT USED FOR UNKNOWN INDICATION
     Dosage: UNK
     Route: 042
     Dates: start: 201412
  14. VENLAFAXINE [Concomitant]
     Active Substance: VENLAFAXINE HYDROCHLORIDE
     Indication: PRODUCT USED FOR UNKNOWN INDICATION
     Dosage: 150 MG, UNK
     Route: 065
     Dates: start: 1994
  15. PREDNISONE. [Suspect]
     Active Substance: PREDNISONE
     Dosage: 20 MG, QD
     Route: 048
  16. AMPYRA [Suspect]
     Active Substance: DALFAMPRIDINE
     Dosage: 10 MG, Q 12 HRS
     Route: 048
     Dates: start: 20130326, end: 201402
  17. AMPYRA [Suspect]
     Active Substance: DALFAMPRIDINE
     Dosage: 10 MG, QOD
     Route: 065
     Dates: start: 201402, end: 20140313
  18. AMPYRA [Suspect]
     Active Substance: DALFAMPRIDINE
     Dosage: 10 MG, BID
     Route: 065
     Dates: start: 20140313, end: 20140323
  19. CIPROFLOXACIN. [Suspect]
     Active Substance: CIPROFLOXACIN
     Indication: PROPHYLAXIS
     Dosage: 100 MG, QD
     Route: 065
  20. BACLOFEN. [Concomitant]
     Active Substance: BACLOFEN
     Indication: PRODUCT USED FOR UNKNOWN INDICATION
     Dosage: 10 MG, BID
     Route: 065
     Dates: start: 1994
  21. NEURONTIN [Concomitant]
     Active Substance: GABAPENTIN
     Dosage: 100 MG, TID
     Route: 048
     Dates: start: 1994
  22. PREDNISONE. [Suspect]
     Active Substance: PREDNISONE
     Dosage: 40 MG, QD
     Route: 048
  23. COPAXONE [Concomitant]
     Active Substance: GLATIRAMER ACETATE
     Indication: MULTIPLE SCLEROSIS
     Dosage: 20 MG, QD
     Route: 058
     Dates: start: 1994
  24. ESTRADIOL. [Concomitant]
     Active Substance: ESTRADIOL
     Indication: PRODUCT USED FOR UNKNOWN INDICATION
     Dosage: 1 MG, QD
     Route: 048
     Dates: start: 1994
  25. CYMBALTA [Concomitant]
     Active Substance: DULOXETINE HYDROCHLORIDE
     Indication: MULTIPLE SCLEROSIS
     Dosage: 60 MG, QD
     Route: 048
  26. NEURONTIN [Concomitant]
     Active Substance: GABAPENTIN
     Indication: MULTIPLE SCLEROSIS
     Dosage: 200 MG, UNK
     Route: 065
     Dates: start: 1994
  27. AMPYRA [Suspect]
     Active Substance: DALFAMPRIDINE
     Dosage: 10 MG, BID
     Route: 048
     Dates: start: 20140415
  28. SANCTURA [Concomitant]
     Active Substance: TROSPIUM CHLORIDE
     Indication: PRODUCT USED FOR UNKNOWN INDICATION
     Dosage: 60 MG, QD
     Route: 065
     Dates: start: 201402

REACTIONS (27)
  - Limb discomfort [Recovered/Resolved]
  - Therapeutic response unexpected [Unknown]
  - Gait disturbance [Recovered/Resolved]
  - Dyskinesia [Recovered/Resolved]
  - Insomnia [Recovered/Resolved]
  - Bedridden [Recovered/Resolved]
  - Peroneal nerve palsy [Recovered/Resolved]
  - Visual impairment [Recovered/Resolved]
  - Multiple sclerosis relapse [Not Recovered/Not Resolved]
  - Cystitis [Recovering/Resolving]
  - Band sensation [Recovered/Resolved]
  - Central nervous system lesion [Not Recovered/Not Resolved]
  - Hypokinesia [Recovered/Resolved]
  - Feeling abnormal [Recovered/Resolved]
  - Therapy cessation [Unknown]
  - Insomnia [Recovered/Resolved]
  - Diplopia [Not Recovered/Not Resolved]
  - Fall [Recovered/Resolved]
  - Fatigue [Recovered/Resolved]
  - Blood pressure increased [Recovered/Resolved]
  - Hypersomnia [Recovered/Resolved]
  - Face injury [Recovered/Resolved]
  - Muscle spasticity [Recovered/Resolved]
  - Joint stiffness [Recovered/Resolved]
  - Incorrect dose administered [Unknown]
  - Balance disorder [Recovered/Resolved]
  - Band sensation [Not Recovered/Not Resolved]

NARRATIVE: CASE EVENT DATE: 201303
